FAERS Safety Report 6109411-X (Version None)
Quarter: 2009Q1

REPORT INFORMATION
  Report Type: 
  Country: None (occurrence: None)
  Receive Date: 20090310
  Receipt Date: 20090303
  Transmission Date: 20090719
  Serious: Yes (Other)
  Sender: FDA-Public Use
  Company Number: B0558449A

PATIENT
  Age: 13 Year
  Sex: Male

DRUGS (6)
  1. RELENZA [Suspect]
     Indication: INFLUENZA
     Dosage: 10MG TWICE PER DAY
     Route: 055
     Dates: start: 20090206, end: 20090206
  2. CLARITH [Concomitant]
     Route: 048
  3. DIMEMORFAN PHOSPHATE [Concomitant]
     Route: 048
  4. BRELOMAX [Concomitant]
     Route: 048
  5. UNKNOWN DRUG [Concomitant]
     Route: 048
  6. UNKNOWN DRUG [Concomitant]
     Route: 048

REACTIONS (4)
  - ABNORMAL BEHAVIOUR [None]
  - CONTUSION [None]
  - FALL [None]
  - NIGHTMARE [None]
